FAERS Safety Report 6732365-X (Version None)
Quarter: 2010Q2

REPORT INFORMATION
  Report Type: 
  Country: None (occurrence: None)
  Receive Date: 20100519
  Receipt Date: 20100511
  Transmission Date: 20101027
  Serious: Yes (Other)
  Sender: FDA-Public Use
  Company Number: DE-ROCHE-692829

PATIENT
  Sex: Female
  Weight: 70 kg

DRUGS (10)
  1. ROACTEMRA [Suspect]
     Indication: RHEUMATOID ARTHRITIS
     Route: 042
     Dates: start: 20100107
  2. BONIVA [Concomitant]
     Indication: OSTEOPOROSIS
     Route: 042
  3. CALCIUM/VITAMIN D3 [Concomitant]
     Indication: OSTEOPOROSIS
     Route: 048
  4. ARAVA [Concomitant]
     Indication: RHEUMATOID ARTHRITIS
     Route: 048
  5. PREDNISOLONE [Concomitant]
     Indication: RHEUMATOID ARTHRITIS
     Route: 048
  6. NITRENDIPINE [Concomitant]
     Indication: HYPERTENSION
     Route: 048
  7. DOXAZOSIN MESYLATE [Concomitant]
     Indication: HYPERTENSION
     Route: 048
  8. METOHEXAL [Concomitant]
     Indication: HYPERTENSION
     Route: 048
  9. OMEPRAZOLE [Concomitant]
     Route: 048
  10. NOVAMINSULFON [Concomitant]
     Indication: PAIN
     Route: 048

REACTIONS (1)
  - DELUSION [None]
